FAERS Safety Report 25140808 (Version 1)
Quarter: 2025Q1

REPORT INFORMATION
  Report Type: Spontaneous
  Country: CN (occurrence: CN)
  Receive Date: 20250331
  Receipt Date: 20250331
  Transmission Date: 20250408
  Serious: Yes (Hospitalization, Other)
  Sender: PFIZER
  Company Number: CN-PFIZER INC-PV202500037273

PATIENT
  Age: 19 Year
  Sex: Male

DRUGS (25)
  1. XYNTHA [Suspect]
     Active Substance: MOROCTOCOG ALFA
     Indication: Factor VIII deficiency
     Route: 042
     Dates: start: 20230724
  2. XYNTHA [Suspect]
     Active Substance: MOROCTOCOG ALFA
     Route: 042
     Dates: start: 20230725
  3. XYNTHA [Suspect]
     Active Substance: MOROCTOCOG ALFA
     Route: 042
     Dates: start: 20230726
  4. XYNTHA [Suspect]
     Active Substance: MOROCTOCOG ALFA
     Route: 042
     Dates: start: 20230727
  5. XYNTHA [Suspect]
     Active Substance: MOROCTOCOG ALFA
     Dosage: 4000 IU, 2X/DAY (Q 12H)
     Route: 042
     Dates: start: 20230727
  6. XYNTHA [Suspect]
     Active Substance: MOROCTOCOG ALFA
     Route: 042
     Dates: start: 20230729
  7. XYNTHA [Suspect]
     Active Substance: MOROCTOCOG ALFA
     Dosage: 2400 IU, 1X/DAY
     Route: 042
     Dates: start: 20230729
  8. XYNTHA [Suspect]
     Active Substance: MOROCTOCOG ALFA
     Route: 042
     Dates: start: 20230730
  9. XYNTHA [Suspect]
     Active Substance: MOROCTOCOG ALFA
     Route: 042
     Dates: start: 20230731
  10. XYNTHA [Suspect]
     Active Substance: MOROCTOCOG ALFA
     Dosage: 1500 IU, 1X/DAY
     Route: 042
     Dates: start: 20230731
  11. XYNTHA [Suspect]
     Active Substance: MOROCTOCOG ALFA
     Dosage: 1000 IU, 1X/DAY
     Route: 040
     Dates: start: 20230814
  12. XYNTHA [Suspect]
     Active Substance: MOROCTOCOG ALFA
     Route: 040
     Dates: start: 20230925
  13. XYNTHA [Suspect]
     Active Substance: MOROCTOCOG ALFA
     Route: 040
     Dates: start: 20231027
  14. XYNTHA [Suspect]
     Active Substance: MOROCTOCOG ALFA
     Route: 040
     Dates: start: 20231214
  15. XYNTHA [Suspect]
     Active Substance: MOROCTOCOG ALFA
     Dosage: 1000 IU, ALTERNATE DAY
     Route: 042
     Dates: start: 20240306
  16. XYNTHA [Suspect]
     Active Substance: MOROCTOCOG ALFA
     Dosage: 1000 IU, ALTERNATE DAY
     Route: 042
     Dates: start: 20240415
  17. XYNTHA [Suspect]
     Active Substance: MOROCTOCOG ALFA
     Dosage: 1000 IU, ALTERNATE DAY
     Route: 042
     Dates: start: 20240508
  18. XYNTHA [Suspect]
     Active Substance: MOROCTOCOG ALFA
     Dosage: 1000 IU, ALTERNATE DAY
     Route: 042
     Dates: start: 20240702
  19. XYNTHA [Suspect]
     Active Substance: MOROCTOCOG ALFA
     Dosage: 1000 IU, ALTERNATE DAY
     Route: 042
     Dates: start: 20240815
  20. XYNTHA [Suspect]
     Active Substance: MOROCTOCOG ALFA
     Dosage: 1000 IU, ALTERNATE DAY
     Route: 042
     Dates: start: 20241010
  21. XYNTHA [Suspect]
     Active Substance: MOROCTOCOG ALFA
     Dosage: 500 IU, ALTERNATE DAY
     Route: 042
     Dates: start: 20241215
  22. XYNTHA [Suspect]
     Active Substance: MOROCTOCOG ALFA
     Dosage: 1000 IU, ALTERNATE DAY
     Route: 042
     Dates: start: 20241215
  23. XYNTHA [Suspect]
     Active Substance: MOROCTOCOG ALFA
     Dosage: 500 IU, ALTERNATE DAY
     Route: 042
     Dates: start: 20250118
  24. XYNTHA [Suspect]
     Active Substance: MOROCTOCOG ALFA
     Dosage: 1000 IU, ALTERNATE DAY
     Route: 042
     Dates: start: 20250124
  25. XYNTHA [Suspect]
     Active Substance: MOROCTOCOG ALFA
     Dosage: 1000 IU, 1X/DAY
     Route: 042
     Dates: start: 20250320

REACTIONS (1)
  - Knee deformity [Unknown]

NARRATIVE: CASE EVENT DATE: 20230101
